FAERS Safety Report 7939407-4 (Version None)
Quarter: 2011Q4

REPORT INFORMATION
  Report Type: 
  Country: None (occurrence: None)
  Receive Date: 20111125
  Receipt Date: 20111114
  Transmission Date: 20120403
  Serious: Yes (Other)
  Sender: FDA-Public Use
  Company Number: AR-ROCHE-1013924

PATIENT
  Sex: Male

DRUGS (1)
  1. LUCENTIS [Suspect]
     Indication: DIABETIC RETINOPATHY
     Route: 050
     Dates: start: 20110401

REACTIONS (2)
  - EYE HAEMORRHAGE [None]
  - EYE DISORDER [None]
